FAERS Safety Report 21473593 (Version 9)
Quarter: 2023Q4

REPORT INFORMATION
  Report Type: Spontaneous
  Country: IN (occurrence: IN)
  Receive Date: 20221018
  Receipt Date: 20231120
  Transmission Date: 20240110
  Serious: Yes (Other)
  Sender: FDA-Public Use
  Company Number: IN-PFIZER INC-PV202200008764

PATIENT
  Age: 62 Year
  Sex: Female
  Weight: 65 kg

DRUGS (4)
  1. PALBOCICLIB [Suspect]
     Active Substance: PALBOCICLIB
     Indication: Breast cancer metastatic
     Dosage: 125 MG, CYCLIC (1X/DAY, 21 DAYS ON/7 DAYS OFF)
     Route: 048
     Dates: start: 202111
  2. ANASTROZOLE [Concomitant]
     Active Substance: ANASTROZOLE
     Indication: Breast cancer metastatic
     Dosage: 1 MG, 1X/DAY
  3. UPRISE D3 [Concomitant]
     Dosage: 60 K, MONTHLY
  4. ZOLASTA [Concomitant]
     Dosage: 4MG/100ML NS/30MIN, EVERY 3 MONTHS

REACTIONS (14)
  - Neutrophil count abnormal [Unknown]
  - Blood pressure increased [Unknown]
  - Haemoglobin decreased [Unknown]
  - Pain in extremity [Not Recovered/Not Resolved]
  - Lip dry [Not Recovered/Not Resolved]
  - Food intolerance [Not Recovered/Not Resolved]
  - White blood cell count decreased [Unknown]
  - Dyspepsia [Unknown]
  - Glycosylated haemoglobin increased [Unknown]
  - Blood glucose increased [Unknown]
  - Platelet count decreased [Unknown]
  - Dysuria [Unknown]
  - Heart rate increased [Unknown]
  - Decreased appetite [Unknown]

NARRATIVE: CASE EVENT DATE: 20220101
